FAERS Safety Report 8568353-0 (Version None)
Quarter: 2012Q3

REPORT INFORMATION
  Report Type: 
  Country: None (occurrence: None)
  Receive Date: 20120803
  Receipt Date: 20120109
  Transmission Date: 20120928
  Serious: No
  Sender: FDA-Public Use
  Company Number: US-ABBOTT-12P-163-0891306-00

PATIENT
  Age: 50 Year
  Sex: Female

DRUGS (1)
  1. NIASPAN [Suspect]
     Indication: PRODUCT USED FOR UNKNOWN INDICATION
     Dosage: PT NOT GOING TO TAKE ANY FURTHER DOSES

REACTIONS (4)
  - CHOKING SENSATION [None]
  - DIARRHOEA [None]
  - HOT FLUSH [None]
  - SWOLLEN TONGUE [None]
